FAERS Safety Report 9996547 (Version 2)
Quarter: 2014Q1

REPORT INFORMATION
  Report Type: Spontaneous
  Country: JP (occurrence: JP)
  Receive Date: 20140311
  Receipt Date: 20140325
  Transmission Date: 20141002
  Serious: Yes (Other)
  Sender: FDA-Public Use
  Company Number: JP-BRISTOL-MYERS SQUIBB COMPANY-20443503

PATIENT
  Age: 69 Year
  Sex: Male

DRUGS (3)
  1. ERBITUX SOLN FOR INF 5MG/ML [Suspect]
     Indication: SQUAMOUS CELL CARCINOMA OF HEAD AND NECK
     Dosage: 19N13-17D13, 10JAN14-17JAN14:250MG/M2 1IN1WK
     Route: 041
     Dates: start: 20131112
  2. CISPLATIN [Suspect]
     Indication: SQUAMOUS CELL CARCINOMA OF HEAD AND NECK
     Dosage: 3DEC13-60MG/M2.10JAN14-48MG/M2
     Route: 041
     Dates: start: 20131112, end: 20131112
  3. DOCETAXEL [Suspect]
     Indication: SQUAMOUS CELL CARCINOMA OF HEAD AND NECK
     Dosage: 3D13-60MG/M2 1IN 1D.10JAN14-48MG/M2 1IN 1 D?03DEC2013
     Route: 041
     Dates: start: 20131112

REACTIONS (12)
  - Lung infection [Recovered/Resolved]
  - Impaired gastric emptying [Recovered/Resolved]
  - Febrile neutropenia [Unknown]
  - Constipation [Unknown]
  - Alopecia [Unknown]
  - Decreased appetite [Unknown]
  - Dermatitis acneiform [Unknown]
  - Skin reaction [Unknown]
  - Stomatitis [Unknown]
  - Oedema [Unknown]
  - Nausea [Unknown]
  - Vomiting [Unknown]
